FAERS Safety Report 20212444 (Version 1)
Quarter: 2021Q4

REPORT INFORMATION
  Report Type: Report from Study
  Country: CN (occurrence: CN)
  Receive Date: 20211221
  Receipt Date: 20211221
  Transmission Date: 20220303
  Serious: Yes (Hospitalization)
  Sender: FDA-Public Use
  Company Number: CN-ELI_LILLY_AND_COMPANY-CN202111012767

PATIENT
  Age: 54 Year
  Sex: Female

DRUGS (1)
  1. HUMALOG [Suspect]
     Active Substance: INSULIN LISPRO
     Indication: Diabetes mellitus
     Dosage: 12 U, BID(MORNING AND NIGHT)
     Route: 058
     Dates: start: 2016

REACTIONS (3)
  - Fall [Unknown]
  - Lower limb fracture [Unknown]
  - Hypoglycaemia [Unknown]
